FAERS Safety Report 8963657 (Version 1)
Quarter: 2012Q4

REPORT INFORMATION
  Report Type: 
  Country: US (occurrence: US)
  Receive Date: 20121214
  Receipt Date: 20121214
  Transmission Date: 20130627
  Serious: Yes (Hospitalization)
  Sender: FDA-Public Use
  Company Number: US-BAYER-2012-129927

PATIENT
  Age: 38 Year
  Sex: Female
  Weight: 110 kg

DRUGS (20)
  1. YAZ [Suspect]
  2. VITAMIN C [Concomitant]
  3. VITAMIN D [Concomitant]
  4. VITAMIN B12 [Concomitant]
  5. MULTIVITAMIN [Concomitant]
  6. FISH OIL [Concomitant]
  7. MIRALAX [Concomitant]
     Indication: CONSTIPATION
  8. MAGNESIUM CITRATE [Concomitant]
  9. TUMS [CALCIUM CARBONATE] [Concomitant]
  10. GOLYTELY [Concomitant]
  11. SENNA [Concomitant]
     Indication: CONSTIPATION
  12. ZITHROMAX [Concomitant]
     Dosage: 250 mg, as directed for five days
     Dates: start: 20110119
  13. AUGMENTIN [Concomitant]
     Indication: SINUSITIS
     Dosage: 875 mg, BID, for 10 days
     Dates: start: 20110222
  14. DIFLUCAN [Concomitant]
     Dosage: 150 mg, for one day
     Dates: start: 20110222
  15. ALLEGRA-D [Concomitant]
     Dosage: 1 tablet daily prn
     Dates: start: 20110314
  16. IBUPROFEN [Concomitant]
     Dosage: 800 mg, UNK
     Dates: start: 20110314
  17. SERTRALINE HYDROCHLORIDE [Concomitant]
     Dosage: 50 mg, daily
     Dates: start: 20110314
  18. TRAMADOL HYDROCHLORIDE [Concomitant]
     Indication: PAIN
     Dosage: 50 mg, 1-2 four times daily prn
     Dates: start: 20110314
  19. PERCOCET [Concomitant]
     Dosage: 5-325 every 6 hours prn, 10 days
     Dates: start: 20110314
  20. XANAX [Concomitant]
     Dosage: UNK
     Dates: start: 20110316

REACTIONS (1)
  - Mesenteric vein thrombosis [None]
